FAERS Safety Report 16863426 (Version 2)
Quarter: 2019Q4

REPORT INFORMATION
  Report Type: Spontaneous
  Country: JP (occurrence: JP)
  Receive Date: 20190927
  Receipt Date: 20191226
  Transmission Date: 20200122
  Serious: Yes (Hospitalization, Disabling, Other)
  Sender: FDA-Public Use
  Company Number: JP-009507513-1909JPN002665J

PATIENT
  Age: 3 Year
  Sex: Male

DRUGS (1)
  1. NU-LOTAN TABLETS 50MG [Suspect]
     Active Substance: LOSARTAN
     Indication: HYPERTENSION
     Dosage: UNK
     Route: 064

REACTIONS (6)
  - Nephrogenic diabetes insipidus [Not Recovered/Not Resolved]
  - Epilepsy [Not Recovered/Not Resolved]
  - Posthaemorrhagic hydrocephalus [Not Recovered/Not Resolved]
  - Intellectual disability [Not Recovered/Not Resolved]
  - Foetal exposure during pregnancy [Unknown]
  - Renal impairment [Unknown]

NARRATIVE: CASE EVENT DATE: 200607
